FAERS Safety Report 6426639-X (Version None)
Quarter: 2009Q4

REPORT INFORMATION
  Report Type: 
  Country: None (occurrence: None)
  Receive Date: 20091104
  Receipt Date: 20091028
  Transmission Date: 20100525
  Serious: Yes (Death, Hospitalization)
  Sender: FDA-Public Use
  Company Number: GXKR2009GB11822

PATIENT
  Age: 70 Year
  Sex: Female

DRUGS (3)
  1. LAMOTRIGINE (NGX) [Suspect]
     Indication: SCHIZOPHRENIA
     Route: 048
  2. CLOZARIL [Interacting]
     Indication: SCHIZOPHRENIA, PARANOID TYPE
     Dosage: 500 MG, QD
     Route: 065
     Dates: start: 20010101
  3. CLOZARIL [Interacting]
     Dosage: 450 UNK, UNK
     Route: 048
     Dates: start: 19990727

REACTIONS (5)
  - ANTIPSYCHOTIC DRUG LEVEL INCREASED [None]
  - DRUG INTERACTION [None]
  - LOWER RESPIRATORY TRACT INFECTION [None]
  - LUNG CANCER METASTATIC [None]
  - TERMINAL STATE [None]
